FAERS Safety Report 14341733 (Version 1)
Quarter: 2018Q1

REPORT INFORMATION
  Report Type: Spontaneous
  Country: CH (occurrence: CH)
  Receive Date: 20180102
  Receipt Date: 20180102
  Transmission Date: 20180509
  Serious: Yes (Other)
  Sender: FDA-Public Use
  Company Number: CH-ROCHE-2045717

PATIENT
  Sex: Female

DRUGS (5)
  1. LETROZOL [Concomitant]
     Active Substance: LETROZOLE
     Indication: INVASIVE BREAST CARCINOMA
     Route: 065
     Dates: start: 201410, end: 201603
  2. DENOSUMAB [Concomitant]
     Active Substance: DENOSUMAB
     Indication: INVASIVE BREAST CARCINOMA
     Route: 065
     Dates: start: 201601, end: 201610
  3. DOCETAXEL. [Concomitant]
     Active Substance: DOCETAXEL
     Indication: INVASIVE BREAST CARCINOMA
     Route: 065
     Dates: start: 20160802, end: 20161206
  4. HERCEPTIN [Suspect]
     Active Substance: TRASTUZUMAB
     Indication: INVASIVE BREAST CARCINOMA
     Route: 065
     Dates: start: 201410, end: 20161206
  5. PERJETA [Suspect]
     Active Substance: PERTUZUMAB
     Indication: INVASIVE BREAST CARCINOMA
     Route: 042
     Dates: start: 20160802, end: 20161206

REACTIONS (1)
  - Disease progression [Not Recovered/Not Resolved]

NARRATIVE: CASE EVENT DATE: 2016
